FAERS Safety Report 16858007 (Version 2)
Quarter: 2019Q3

REPORT INFORMATION
  Report Type: Report from Study
  Country: US (occurrence: US)
  Receive Date: 20190926
  Receipt Date: 20190926
  Transmission Date: 20191005
  Serious: Yes (Hospitalization)
  Sender: FDA-Public Use
  Company Number: US-EISAI MEDICAL RESEARCH-EC-2019-062508

PATIENT
  Age: 68 Year
  Sex: Female
  Weight: 66.4 kg

DRUGS (10)
  1. CARVEDILOL. [Concomitant]
     Active Substance: CARVEDILOL
  2. PEMBROLIZUMAB. [Suspect]
     Active Substance: PEMBROLIZUMAB
     Indication: METASTATIC RENAL CELL CARCINOMA
     Route: 041
     Dates: start: 20180419
  3. LENVATINIB [Suspect]
     Active Substance: LENVATINIB
     Indication: METASTATIC RENAL CELL CARCINOMA
     Route: 048
     Dates: start: 20180419, end: 20180607
  4. LENVATINIB [Suspect]
     Active Substance: LENVATINIB
     Route: 048
     Dates: start: 20180608
  5. LISINOPRIL. [Concomitant]
     Active Substance: LISINOPRIL
  6. MULTIVITAMIN [Concomitant]
     Active Substance: VITAMINS
  7. ROSUVASTATIN. [Concomitant]
     Active Substance: ROSUVASTATIN
  8. PREDNISONE. [Concomitant]
     Active Substance: PREDNISONE
  9. ASPIRIN. [Concomitant]
     Active Substance: ASPIRIN
  10. LEVOTHYROXINE. [Concomitant]
     Active Substance: LEVOTHYROXINE

REACTIONS (1)
  - Cellulitis [Recovered/Resolved]

NARRATIVE: CASE EVENT DATE: 20190910
